FAERS Safety Report 4511251-X (Version None)
Quarter: 2004Q4

REPORT INFORMATION
  Report Type: 
  Country: None (occurrence: None)
  Receive Date: 20041122
  Receipt Date: 20041122
  Transmission Date: 20050328
  Serious: No
  Sender: FDA-Public Use
  Company Number: None

PATIENT
  Age: 24 Year
  Sex: Female
  Weight: 72.5755 kg

DRUGS (1)
  1. DEPO-PROVERA [Suspect]
     Indication: CONTRACEPTION
     Dosage: 3 MONTH
     Dates: start: 19970601, end: 20040222

REACTIONS (2)
  - BLOOD CALCIUM DECREASED [None]
  - INFERTILITY FEMALE [None]
